FAERS Safety Report 4860161-7 (Version None)
Quarter: 2005Q4

REPORT INFORMATION
  Report Type: 
  Country: None (occurrence: None)
  Receive Date: 20051214
  Receipt Date: 20051128
  Transmission Date: 20060501
  Serious: Yes (Hospitalization)
  Sender: FDA-Public Use
  Company Number: US200511003287

PATIENT
  Age: 88 Year
  Sex: Female

DRUGS (2)
  1. FORTEO [Suspect]
     Dosage: UNK
     Route: 065
     Dates: start: 20051001
  2. FORTEO PEN (FORTEO PEN) [Concomitant]

REACTIONS (1)
  - MYOCARDIAL INFARCTION [None]
